FAERS Safety Report 4545875-0 (Version None)
Quarter: 2005Q1

REPORT INFORMATION
  Report Type: 
  Country: None (occurrence: None)
  Receive Date: 20050103
  Receipt Date: 20041222
  Transmission Date: 20050727
  Serious: Yes (Other)
  Sender: FDA-Public Use
  Company Number: 2004114439

PATIENT
  Sex: Male
  Weight: 109.7705 kg

DRUGS (9)
  1. TIKOSYN [Suspect]
     Indication: ATRIAL FIBRILLATION
     Dosage: 500 MCG (250 MCG, 2 IN 1 D), ORAL
     Route: 048
     Dates: start: 19990101
  2. PROCHLORPERAZINE EDISYLATE [Suspect]
     Indication: NAUSEA
     Dates: start: 20041001, end: 20041201
  3. FLUOROURACIL [Suspect]
     Indication: LIVER DISORDER
     Dates: start: 20041001
  4. FLUOROURACIL [Suspect]
     Indication: NEOPLASM MALIGNANT
     Dates: start: 20041001
  5. BEVACIZUMAB (BEVACIZUMAB) [Suspect]
     Indication: LIVER DISORDER
     Dates: start: 20041001
  6. BEVACIZUMAB (BEVACIZUMAB) [Suspect]
     Indication: NEOPLASM MALIGNANT
     Dates: start: 20041001
  7. WARFARIN (WARFARIN) [Concomitant]
  8. ATENOLOL [Concomitant]
  9. VALSARTAN (VALSARTAN) [Concomitant]

REACTIONS (8)
  - ARRHYTHMIA [None]
  - ATRIAL FIBRILLATION [None]
  - BLOOD PRESSURE SYSTOLIC INCREASED [None]
  - COLON NEOPLASM [None]
  - DISEASE RECURRENCE [None]
  - GINGIVAL BLEEDING [None]
  - HEPATIC NEOPLASM MALIGNANT [None]
  - PROTHROMBIN TIME PROLONGED [None]
